FAERS Safety Report 22963580 (Version 4)
Quarter: 2023Q4

REPORT INFORMATION
  Report Type: Report from Study
  Country: US (occurrence: US)
  Receive Date: 20230921
  Receipt Date: 20231227
  Transmission Date: 20240110
  Serious: Yes (Other)
  Sender: FDA-Public Use
  Company Number: US-ACADIA PHARMACEUTICALS INC.-ACA-2023-PIM-004026

PATIENT
  Sex: Female

DRUGS (10)
  1. NUPLAZID [Suspect]
     Active Substance: PIMAVANSERIN TARTRATE
     Indication: Parkinson^s disease psychosis
     Dosage: 34 MILLIGRAM, QD
     Route: 048
  2. NUPLAZID [Suspect]
     Active Substance: PIMAVANSERIN TARTRATE
     Indication: Dementia with Lewy bodies
     Dosage: 34 MILLIGRAM, QD
     Route: 048
     Dates: start: 202309
  3. VITAMIN B1 [Concomitant]
     Active Substance: THIAMINE HYDROCHLORIDE
  4. VITAMIN B12 [Concomitant]
     Active Substance: CYANOCOBALAMIN
  5. PRAVASTATIN [Concomitant]
     Active Substance: PRAVASTATIN
  6. TIMOLOL [Concomitant]
     Active Substance: TIMOLOL
  7. LATANOPROST [Concomitant]
     Active Substance: LATANOPROST
  8. VITAMINS [Concomitant]
     Active Substance: VITAMINS
  9. VITAMIN B [Concomitant]
     Active Substance: VITAMIN B
  10. VITAMIN D NOS [Concomitant]
     Active Substance: VITAMIN D NOS

REACTIONS (15)
  - Cerebrovascular accident [Unknown]
  - Hydrocephalus [Not Recovered/Not Resolved]
  - Ill-defined disorder [Unknown]
  - Balance disorder [Unknown]
  - Abnormal behaviour [Unknown]
  - Product dose omission issue [Recovered/Resolved]
  - Cerebral disorder [Not Recovered/Not Resolved]
  - Anxiety [Not Recovered/Not Resolved]
  - Paranoia [Not Recovered/Not Resolved]
  - Somnolence [Unknown]
  - Hallucination, visual [Unknown]
  - Hallucination [Unknown]
  - Hallucination, tactile [Unknown]
  - Hallucination [Not Recovered/Not Resolved]
  - Hallucination [Unknown]
